FAERS Safety Report 8205120-1 (Version None)
Quarter: 2012Q1

REPORT INFORMATION
  Report Type: 
  Country: None (occurrence: None)
  Receive Date: 20120313
  Receipt Date: 20120306
  Transmission Date: 20120608
  Serious: Yes (Death, Hospitalization, Congenital Anomaly)
  Sender: FDA-Public Use
  Company Number: US-GLAXOSMITHKLINE-A0930795A

PATIENT
  Sex: Male

DRUGS (5)
  1. PAXIL [Suspect]
     Indication: HEADACHE
     Dosage: 25MG TWICE PER DAY
     Route: 064
     Dates: start: 20051218, end: 20060618
  2. MULTI-VITAMINS [Concomitant]
     Route: 064
  3. FAMOTIDINE [Concomitant]
     Indication: GASTROOESOPHAGEAL REFLUX DISEASE
     Route: 064
     Dates: start: 20060101
  4. TOPROL-XL [Concomitant]
     Indication: HYPERTENSION
     Route: 064
     Dates: start: 20060101
  5. METHYLDOPA [Concomitant]
     Indication: HYPERTENSION
     Route: 064
     Dates: start: 20060101

REACTIONS (3)
  - HYPOPLASTIC RIGHT HEART SYNDROME [None]
  - HYPOPLASTIC LEFT HEART SYNDROME [None]
  - FOETAL EXPOSURE DURING PREGNANCY [None]
